FAERS Safety Report 5675445-2 (Version None)
Quarter: 2008Q2

REPORT INFORMATION
  Report Type: 
  Country: None (occurrence: None)
  Receive Date: 20080311
  Receipt Date: 20070326
  Transmission Date: 20081010
  Serious: Yes (Other)
  Sender: FDA-Public Use
  Company Number: PHEH2007US03534

PATIENT
  Age: 20 Year
  Sex: Female

DRUGS (1)
  1. TRILEPTAL [Suspect]
     Dates: start: 20050325, end: 20050413

REACTIONS (5)
  - ANXIETY [None]
  - DECREASED INTEREST [None]
  - EMOTIONAL DISTRESS [None]
  - HYPERSENSITIVITY [None]
  - PAIN [None]
